FAERS Safety Report 8269183-X (Version None)
Quarter: 2012Q2

REPORT INFORMATION
  Report Type: 
  Country: None (occurrence: None)
  Receive Date: 20120409
  Receipt Date: 20120329
  Transmission Date: 20120825
  Serious: Yes (Other)
  Sender: FDA-Public Use
  Company Number: PHHY2012US028156

PATIENT
  Age: 73 Year
  Sex: Female

DRUGS (5)
  1. TYLENOL (CAPLET) [Concomitant]
  2. FLECTOR [Concomitant]
  3. BAYER [Concomitant]
  4. BUFFERIN [Suspect]
     Indication: BACK PAIN
     Route: 048
  5. NAPROSYN [Concomitant]

REACTIONS (4)
  - INCORRECT DRUG ADMINISTRATION DURATION [None]
  - DRUG INEFFECTIVE [None]
  - ARTHRITIS [None]
  - INTERVERTEBRAL DISC PROTRUSION [None]
